FAERS Safety Report 10084044 (Version 6)
Quarter: 2014Q4

REPORT INFORMATION
  Report Type: Spontaneous
  Country: AR (occurrence: AR)
  Receive Date: 20140417
  Receipt Date: 20141113
  Transmission Date: 20150528
  Serious: Yes (Other)
  Sender: FDA-Public Use
  Company Number: AR-PFIZER INC-2014105271

PATIENT
  Age: 34 Year
  Sex: Female

DRUGS (1)
  1. INLYTA [Suspect]
     Active Substance: AXITINIB
     Indication: RENAL CANCER
     Dosage: 10 MG, 1X/DAY
     Dates: start: 20131102

REACTIONS (7)
  - Renal cancer [Recovering/Resolving]
  - Haemorrhage [Recovering/Resolving]
  - Bronchial obstruction [Recovering/Resolving]
  - Disease progression [Recovering/Resolving]
  - Dyspnoea [Recovering/Resolving]
  - Drug intolerance [Unknown]
  - Oesophageal compression [Recovering/Resolving]

NARRATIVE: CASE EVENT DATE: 2013
